FAERS Safety Report 8392328-8 (Version None)
Quarter: 2012Q2

REPORT INFORMATION
  Report Type: 
  Country: None (occurrence: None)
  Receive Date: 20120529
  Receipt Date: 20120514
  Transmission Date: 20120825
  Serious: Yes (Death)
  Sender: FDA-Public Use
  Company Number: US-ROCHE-726553

PATIENT
  Age: 11 Year
  Sex: Male

DRUGS (1)
  1. ROCEPHIN [Suspect]
     Indication: PNEUMONIA
     Route: 065

REACTIONS (2)
  - BACK PAIN [None]
  - DISSEMINATED INTRAVASCULAR COAGULATION [None]
